FAERS Safety Report 11671073 (Version 1)
Quarter: 2015Q4

REPORT INFORMATION
  Report Type: Spontaneous
  Country: US (occurrence: US)
  Receive Date: 20151027
  Receipt Date: 20151027
  Transmission Date: 20160304
  Serious: No
  Sender: FDA-Public Use
  Company Number: US-ELI_LILLY_AND_COMPANY-US201005006374

PATIENT
  Sex: Female

DRUGS (1)
  1. FORTEO [Suspect]
     Active Substance: TERIPARATIDE
     Indication: OSTEOPOROSIS
     Dosage: 20 UG, UNKNOWN
     Dates: start: 20100514

REACTIONS (11)
  - Feeling abnormal [Unknown]
  - Hyperhidrosis [Unknown]
  - Dizziness [Unknown]
  - Somnolence [Unknown]
  - Fatigue [Unknown]
  - Pain [Unknown]
  - Coordination abnormal [Unknown]
  - Feeling drunk [Unknown]
  - Gait disturbance [Unknown]
  - Psoriasis [Unknown]
  - Muscular weakness [Unknown]

NARRATIVE: CASE EVENT DATE: 201005
